FAERS Safety Report 5674913-7 (Version None)
Quarter: 2008Q1

REPORT INFORMATION
  Report Type: 
  Country: None (occurrence: None)
  Receive Date: 20080320
  Receipt Date: 20080131
  Transmission Date: 20080703
  Serious: Yes (Hospitalization, Other)
  Sender: FDA-Public Use
  Company Number: FR-BRISTOL-MYERS SQUIBB COMPANY-13403456

PATIENT
  Age: 87 Year
  Sex: Female
  Weight: 50 kg

DRUGS (10)
  1. IRBESARTAN [Suspect]
     Indication: HYPERTENSION
     Dates: start: 20060306
  2. BLINDED: PLACEBO [Suspect]
     Indication: HYPERTENSION
     Dates: start: 20060306
  3. BLINDED: CLOPIDOGREL BISULFATE [Suspect]
     Indication: PROPHYLAXIS
     Route: 048
     Dates: start: 20060306, end: 20060529
  4. ASPIRIN [Suspect]
     Indication: PROPHYLAXIS
     Route: 048
     Dates: start: 20060306, end: 20060529
  5. OFLOCET [Concomitant]
  6. LASILIX [Concomitant]
  7. CARDENSIEL [Concomitant]
  8. OMEPRAZOLE [Concomitant]
  9. NITRODERM [Concomitant]
  10. FLAGYL [Concomitant]

REACTIONS (4)
  - ANAEMIA [None]
  - DIARRHOEA [None]
  - THROMBOCYTOPENIA [None]
  - URINARY TRACT INFECTION [None]
